FAERS Safety Report 9451001 (Version 1)
Quarter: 2013Q3

REPORT INFORMATION
  Report Type: Spontaneous
  Country: GB (occurrence: None)
  Receive Date: 20130807
  Receipt Date: 20130807
  Transmission Date: 20140515
  Serious: Yes (Other)
  Sender: FDA-Public Use
  Company Number: AUR-APL-2013-06357

PATIENT
  Age: 72 Year
  Sex: Female
  Weight: 74.4 kg

DRUGS (11)
  1. METFORMIN (METFORMIN) [Suspect]
     Indication: TYPE 2 DIABETES MELLITUS
     Dosage: (500 MG, 1 IN 1 D, UNKNOWN
     Dates: end: 20130521
  2. ASPIRIN [Concomitant]
  3. ATENOLOL [Concomitant]
  4. ATORVASTATIN [Concomitant]
  5. CANDESARTAN [Concomitant]
  6. CO-PROXAMOL [Concomitant]
  7. DILCARDIA SR [Concomitant]
  8. GLICLAZIDE [Concomitant]
  9. LEVOTHYROXINE [Concomitant]
  10. MONOMIL XL [Concomitant]
  11. PANTOPRAZOLE [Concomitant]

REACTIONS (1)
  - Faecal incontinence [None]
